FAERS Safety Report 5859490-X (Version None)
Quarter: 2008Q3

REPORT INFORMATION
  Report Type: 
  Country: None (occurrence: None)
  Receive Date: 20080827
  Receipt Date: 20080821
  Transmission Date: 20090109
  Serious: Yes (Hospitalization)
  Sender: FDA-Public Use
  Company Number: A0718456A

PATIENT
  Age: 50 Year
  Sex: Female
  Weight: 97.7 kg

DRUGS (4)
  1. AVANDIA [Suspect]
     Dosage: 8MG PER DAY
     Route: 048
     Dates: start: 20040923, end: 20060617
  2. VITAMIN B COMPLEX CAP [Concomitant]
  3. ALPHA LIPOIC ACID [Concomitant]
  4. LOVAZA [Concomitant]

REACTIONS (2)
  - MYOCARDIAL INFARCTION [None]
  - PLEURAL EFFUSION [None]
